FAERS Safety Report 4818342-4 (Version None)
Quarter: 2005Q4

REPORT INFORMATION
  Report Type: 
  Country: None (occurrence: None)
  Receive Date: 20051031
  Receipt Date: 20051014
  Transmission Date: 20060501
  Serious: Yes (Life-Threatening, Hospitalization)
  Sender: FDA-Public Use
  Company Number: 216432

PATIENT
  Age: 75 Year
  Sex: Male

DRUGS (8)
  1. AVASTIN [Suspect]
     Indication: COLON CANCER
     Dosage: 658 MG, Q3W, INTRAVENOUS
     Route: 042
     Dates: start: 20050628
  2. CAPECITABINE (CAPECITABINE) [Suspect]
     Indication: COLON CANCER
     Dosage: 2000 MG, BID , ORAL
     Route: 048
     Dates: start: 20050628, end: 20050712
  3. OXALIPLATIN (OXALIPLATIN) [Suspect]
     Indication: COLON CANCER
     Dosage: 273 MG, Q3W, INTRAVENOUS
     Route: 042
     Dates: start: 20050628, end: 20050628
  4. LEVOTHYROXINE SODIUM [Concomitant]
  5. PANTOLOC (PANTOPRAZOLE) [Concomitant]
  6. METOPROLOL TARTRATE [Concomitant]
  7. ATACAND [Concomitant]
  8. COLACE (DOCUSATE SODIUM) [Concomitant]

REACTIONS (7)
  - CULTURE URINE POSITIVE [None]
  - DIARRHOEA [None]
  - DIPLEGIA [None]
  - ESCHERICHIA INFECTION [None]
  - EYELID PTOSIS [None]
  - PYREXIA [None]
  - VISION BLURRED [None]
